FAERS Safety Report 11087694 (Version 1)
Quarter: 2015Q2

REPORT INFORMATION
  Report Type: Spontaneous
  Country: GB (occurrence: None)
  Receive Date: 20150430
  Receipt Date: 20150430
  Transmission Date: 20150821
  Serious: Yes (Disabling, Other)
  Sender: FDA-Public Use
  Company Number: GB-FAC-000026

PATIENT
  Age: 2 Year
  Sex: Female

DRUGS (6)
  1. STEROIDS [Concomitant]
     Active Substance: UNSPECIFIED INGREDIENT
  2. CEFUROXIME. [Suspect]
     Active Substance: CEFUROXIME
     Dosage: INTRAOCULAR
     Route: 031
  3. VANCOMYCIN [Suspect]
     Active Substance: VANCOMYCIN
     Dosage: INTRAOCULAR
     Route: 031
  4. AMOXICILLIN. [Suspect]
     Active Substance: AMOXICILLIN
     Dosage: ORAL
     Route: 048
  5. CEFTRIAXONE. [Suspect]
     Active Substance: CEFTRIAXONE
     Dosage: PARENTERAL
     Route: 051
  6. CHLORAMPHENICOL [Suspect]
     Active Substance: CHLORAMPHENICOL
     Dosage: PARENTERAL
     Route: 051

REACTIONS (4)
  - Eye swelling [None]
  - Eye excision [None]
  - No therapeutic response [None]
  - Blindness unilateral [None]
